FAERS Safety Report 10580118 (Version 2)
Quarter: 2015Q2

REPORT INFORMATION
  Report Type: Spontaneous
  Country: US (occurrence: US)
  Receive Date: 20141112
  Receipt Date: 20150518
  Transmission Date: 20150821
  Serious: Yes (Hospitalization, Other)
  Sender: FDA-Public Use
  Company Number: US-PFIZER INC-2014307710

PATIENT
  Age: 63 Year
  Sex: Male

DRUGS (3)
  1. TESTOSTERONE. [Suspect]
     Active Substance: TESTOSTERONE
     Indication: HORMONE REPLACEMENT THERAPY
  2. TESTOSTERONE. [Suspect]
     Active Substance: TESTOSTERONE
     Indication: FATIGUE
     Dosage: UNK, EVERY OTHER DAY
  3. DEPO-TESTOSTERONE [Suspect]
     Active Substance: TESTOSTERONE CYPIONATE
     Indication: BLOOD TESTOSTERONE DECREASED
     Dosage: UNK

REACTIONS (5)
  - Infection [Unknown]
  - Thrombosis [Unknown]
  - Breast tenderness [Unknown]
  - Renal failure [Unknown]
  - Dyspnoea [Unknown]

NARRATIVE: CASE EVENT DATE: 20130505
